FAERS Safety Report 4492471-X (Version None)
Quarter: 2004Q4

REPORT INFORMATION
  Report Type: 
  Country: None (occurrence: None)
  Receive Date: 20041029
  Receipt Date: 20041013
  Transmission Date: 20050328
  Serious: Yes (Other)
  Sender: FDA-Public Use
  Company Number: DSA_25173_2004

PATIENT
  Age: 61 Year
  Sex: Male

DRUGS (5)
  1. ENALAPRIL MALEATE [Suspect]
     Dosage: 5 MG Q DAY PO
     Route: 048
     Dates: start: 20040820, end: 20040820
  2. ATENOLOL [Concomitant]
  3. IBUPROFEN [Concomitant]
  4. PARNATE [Concomitant]
  5. STELAZINE [Concomitant]

REACTIONS (3)
  - MUSCLE CRAMP [None]
  - NERVOUSNESS [None]
  - SUICIDE ATTEMPT [None]
